FAERS Safety Report 23989894 (Version 2)
Quarter: 2024Q4

REPORT INFORMATION
  Report Type: Spontaneous
  Country: US (occurrence: US)
  Receive Date: 20240619
  Receipt Date: 20241119
  Transmission Date: 20250114
  Serious: Yes (Hospitalization)
  Sender: PFIZER
  Company Number: US-PFIZER INC-202400192443

PATIENT
  Age: 41 Year
  Sex: Male

DRUGS (1)
  1. OXBRYTA [Suspect]
     Active Substance: VOXELOTOR
     Dosage: 1500 MG (THREE 500 MG TABLETS ONCE DAILY
     Route: 048
     Dates: start: 202106

REACTIONS (3)
  - Priapism [Unknown]
  - Gastrointestinal disorder [Unknown]
  - Intentional product use issue [Unknown]
